FAERS Safety Report 16218043 (Version 1)
Quarter: 2019Q2

REPORT INFORMATION
  Report Type: Report from Study
  Country: IT (occurrence: IT)
  Receive Date: 20190419
  Receipt Date: 20190419
  Transmission Date: 20190711
  Serious: Yes (Other)
  Sender: FDA-Public Use
  Company Number: IT-TEVA-2019-IT-1038801

PATIENT
  Age: 41 Year
  Sex: Female
  Weight: 48 kg

DRUGS (2)
  1. DOXORUBICINA TEVA 2 MG/ML CONCENTRATO PER SOLUZIONE PER INFUSIONE [Suspect]
     Active Substance: DOXORUBICIN
     Indication: BREAST NEOPLASM
     Route: 040
     Dates: start: 20190214
  2. ENDOXAN BAXTER 1 G POLVERE PER SOLUZIONE INIETTABILE [Concomitant]
     Active Substance: CYCLOPHOSPHAMIDE
     Indication: BREAST NEOPLASM
     Route: 042
     Dates: start: 20190214

REACTIONS (4)
  - Feeling cold [Recovered/Resolved]
  - Chest discomfort [Recovered/Resolved]
  - Paraesthesia [Recovered/Resolved]
  - Hypotension [Recovered/Resolved]

NARRATIVE: CASE EVENT DATE: 20190214
